FAERS Safety Report 8199108-7 (Version None)
Quarter: 2012Q1

REPORT INFORMATION
  Report Type: 
  Country: None (occurrence: None)
  Receive Date: 20120309
  Receipt Date: 20120306
  Transmission Date: 20120608
  Serious: Yes (Hospitalization, Disabling)
  Sender: FDA-Public Use
  Company Number: TN-ROCHE-1046135

PATIENT
  Sex: Female
  Weight: 63 kg

DRUGS (2)
  1. PEGINTERFERON ALFA-2A [Suspect]
     Indication: HEPATITIS C
     Route: 058
     Dates: start: 20090819, end: 20100127
  2. COPEGUS [Suspect]
     Indication: HEPATITIS C
     Route: 048
     Dates: start: 20090819, end: 20100127

REACTIONS (2)
  - PLEURAL EFFUSION [None]
  - DIABETIC RETINOPATHY [None]
